FAERS Safety Report 8335639-4 (Version None)
Quarter: 2012Q2

REPORT INFORMATION
  Report Type: 
  Country: None (occurrence: None)
  Receive Date: 20120504
  Receipt Date: 20120426
  Transmission Date: 20120825
  Serious: Yes (Hospitalization)
  Sender: FDA-Public Use
  Company Number: US-BIOGENIDEC-2012BI009801

PATIENT
  Sex: Female

DRUGS (3)
  1. HYPERTENSION MEDICATION NOS [Concomitant]
  2. AVONEX [Suspect]
     Route: 030
     Dates: start: 20111201
  3. AVONEX [Suspect]
     Indication: MULTIPLE SCLEROSIS
     Route: 030

REACTIONS (2)
  - HYPOTENSION [None]
  - AORTIC ANEURYSM [None]
